FAERS Safety Report 12746113 (Version 1)
Quarter: 2016Q3

REPORT INFORMATION
  Report Type: Spontaneous
  Country: US (occurrence: US)
  Receive Date: 20160914
  Receipt Date: 20160914
  Transmission Date: 20161109
  Serious: Yes (Disabling, Other)
  Sender: FDA-Public Use
  Company Number: None

PATIENT
  Age: 52 Year
  Sex: Female
  Weight: 126 kg

DRUGS (6)
  1. OXYCODONE [Suspect]
     Active Substance: OXYCODONE
     Indication: INTERVERTEBRAL DISC DEGENERATION
     Route: 048
     Dates: start: 20160808, end: 20160914
  2. SOMA (GENERIC) [Concomitant]
  3. ADVIL [Concomitant]
     Active Substance: IBUPROFEN
  4. OMEPRAZOLE. [Concomitant]
     Active Substance: OMEPRAZOLE
  5. VALSARTAN. [Concomitant]
     Active Substance: VALSARTAN
  6. LUNESTA (GENERIC) [Concomitant]

REACTIONS (7)
  - Product quality issue [None]
  - Migraine [None]
  - Feeling abnormal [None]
  - Malaise [None]
  - Diarrhoea [None]
  - Nausea [None]
  - Pain [None]

NARRATIVE: CASE EVENT DATE: 20160808
